FAERS Safety Report 24297395 (Version 1)
Quarter: 2024Q3

REPORT INFORMATION
  Report Type: Spontaneous
  Country: GB (occurrence: GB)
  Receive Date: 20240909
  Receipt Date: 20240909
  Transmission Date: 20241017
  Serious: No
  Sender: ALKEM
  Company Number: None

PATIENT
  Age: 34 Year
  Sex: Female

DRUGS (8)
  1. PREGABALIN [Suspect]
     Active Substance: PREGABALIN
     Indication: Ill-defined disorder
     Dosage: UNK
     Route: 065
     Dates: start: 20231227
  2. AMITRIPTYLINE HYDROCHLORIDE [Concomitant]
     Active Substance: AMITRIPTYLINE HYDROCHLORIDE
     Indication: Pain
     Dosage: 2 DOSAGE FORM, HS
     Route: 065
     Dates: start: 20230511, end: 20231129
  3. ATORVASTATIN [Concomitant]
     Active Substance: ATORVASTATIN
     Indication: Blood cholesterol decreased
     Dosage: 1 DOSAGE FORM, OD
     Route: 065
     Dates: start: 20230511
  4. CLOPIDOGREL [Concomitant]
     Active Substance: CLOPIDOGREL BISULFATE
     Indication: Ill-defined disorder
     Dosage: 1 DOSAGE FORM, OD (ONE TABLET TO BE TAKEN ONCE DAILY)
     Route: 065
     Dates: start: 20230511
  5. COCODAMOL [Concomitant]
     Active Substance: ACETAMINOPHEN\CODEINE PHOSPHATE
     Indication: Ill-defined disorder
     Dosage: UNK, QID (TAKE ONE OR TWO TABLETS UP TO FOUR TIMES A DAY)
     Route: 065
  6. FUSIDIC ACID [Concomitant]
     Active Substance: FUSIDIC ACID
     Indication: Ill-defined disorder
     Dosage: TO BE APPLIED GENTLY TO THE AFFECTED AREA(S))
     Route: 065
     Dates: start: 20231003, end: 20231010
  7. PREGABALIN [Concomitant]
     Active Substance: PREGABALIN
     Indication: Ill-defined disorder
     Dosage: 1 DOSAGE FORM, BID (ONE CAPSULE TO BE TAKEN TWICE A DAY)
     Route: 065
     Dates: start: 20231129, end: 20231227
  8. SUMATRIPTAN [Concomitant]
     Active Substance: SUMATRIPTAN\SUMATRIPTAN SUCCINATE
     Indication: Ill-defined disorder
     Dosage: 1 DOSAGE FORM, PRN (ONE TABLET TO BE TAKEN WHEN REQUIRED AT START)
     Route: 065
     Dates: start: 20231212

REACTIONS (1)
  - Migraine [Recovered/Resolved]

NARRATIVE: CASE EVENT DATE: 20231227
